FAERS Safety Report 7288193-2 (Version None)
Quarter: 2011Q1

REPORT INFORMATION
  Report Type: 
  Country: None (occurrence: None)
  Receive Date: 20110211
  Receipt Date: 20110203
  Transmission Date: 20110831
  Serious: Yes (Hospitalization)
  Sender: FDA-Public Use
  Company Number: US-ROCHE-731956

PATIENT
  Sex: Female
  Weight: 70.8 kg

DRUGS (16)
  1. BENADRYL [Concomitant]
  2. EXFORGE [Concomitant]
     Dosage: FREQUENCY: QD
     Dates: end: 20110120
  3. ACTEMRA [Suspect]
     Route: 042
     Dates: start: 20100817
  4. ZYRTEC [Concomitant]
     Dosage: FREQUENCY: QD; FREQUENCY PRN
     Dates: start: 20100708, end: 20101202
  5. VICODIN [Concomitant]
     Dates: start: 20100708, end: 20110120
  6. RESTASIS [Concomitant]
  7. RITUXAN [Concomitant]
  8. ASCORBIC ACID [Concomitant]
     Dosage: FREQUENCY: QD
  9. ACTEMRA [Concomitant]
  10. CRESTOR [Concomitant]
     Dosage: FREQUENCY: QD
     Dates: start: 20100708, end: 20110120
  11. PERCOCET [Concomitant]
  12. BIOTIN [Concomitant]
     Dosage: FREQUENCY: QD
  13. ACTEMRA [Suspect]
     Route: 042
     Dates: start: 20100720
  14. ACTEMRA [Suspect]
     Route: 042
     Dates: start: 20100920
  15. OMEGA [Concomitant]
     Dosage: DRUG: OMEGA 3
  16. CIPROX [Concomitant]

REACTIONS (4)
  - ABDOMINAL ABSCESS [None]
  - ABDOMINAL PAIN UPPER [None]
  - ESCHERICHIA URINARY TRACT INFECTION [None]
  - PLEURITIC PAIN [None]
